FAERS Safety Report 25848316 (Version 3)
Quarter: 2025Q4

REPORT INFORMATION
  Report Type: Spontaneous
  Country: US (occurrence: US)
  Receive Date: 20250925
  Receipt Date: 20251120
  Transmission Date: 20260118
  Serious: Yes (Hospitalization)
  Sender: ABBVIE
  Company Number: US-ABBVIE-6475163

PATIENT
  Age: 60 Year
  Sex: Female
  Weight: 54 kg

DRUGS (4)
  1. BOTOX [Suspect]
     Active Substance: ONABOTULINUMTOXINA
     Indication: Skin wrinkling
     Dosage: TIME INTERVAL: AS NECESSARY: DOSE: 10 UNITS PER BAND
     Route: 065
  2. BOTOX [Suspect]
     Active Substance: ONABOTULINUMTOXINA
     Indication: Skin wrinkling
     Dosage: TIME INTERVAL: AS NECESSARY
     Route: 065
     Dates: start: 2022, end: 2022
  3. BOTOX [Suspect]
     Active Substance: ONABOTULINUMTOXINA
     Indication: Skin wrinkling
     Dosage: TIME INTERVAL: AS NECESSARY: DOSE: 40 UNITS
     Route: 065
     Dates: start: 202507, end: 202507
  4. BOTOX [Suspect]
     Active Substance: ONABOTULINUMTOXINA
     Indication: Skin wrinkling
     Dosage: TIME INTERVAL: AS NECESSARY: DOSE: 40 UNITS
     Route: 065
     Dates: start: 202507, end: 202507

REACTIONS (10)
  - Supraventricular extrasystoles [Not Recovered/Not Resolved]
  - Cough [Not Recovered/Not Resolved]
  - Cardiac disorder [Recovering/Resolving]
  - Palpitations [Unknown]
  - Dyspnoea [Not Recovered/Not Resolved]
  - Dysphonia [Not Recovered/Not Resolved]
  - Dysphagia [Unknown]
  - Hypotension [Unknown]
  - Off label use [Unknown]
  - Constipation [Unknown]

NARRATIVE: CASE EVENT DATE: 20250801
